FAERS Safety Report 6795981-5 (Version None)
Quarter: 2010Q2

REPORT INFORMATION
  Report Type: 
  Country: None (occurrence: None)
  Receive Date: 20100625
  Receipt Date: 20100607
  Transmission Date: 20101027
  Serious: Yes (Hospitalization)
  Sender: FDA-Public Use
  Company Number: PHHO2008DE13294

PATIENT
  Sex: Male
  Weight: 67 kg

DRUGS (5)
  1. SANDIMMUNE [Suspect]
  2. SIMULECT [Suspect]
     Dosage: 20 MG, UNK
     Dates: start: 20080418
  3. NO TREATMENT RECEIVED NOMED [Suspect]
     Indication: LIVER TRANSPLANT
  4. PEGINTERFERON ALFA-2A [Suspect]
     Indication: INFECTION
     Dosage: UNK
     Dates: start: 20080704, end: 20081103
  5. RIBAVIRIN [Suspect]
     Indication: INFECTION
     Dosage: UNK
     Dates: start: 20080704, end: 20081103

REACTIONS (9)
  - ANAEMIA [None]
  - ASTHENIA [None]
  - CONDITION AGGRAVATED [None]
  - CYTOMEGALOVIRUS INFECTION [None]
  - HERPES SIMPLEX [None]
  - LEUKOPENIA [None]
  - NODULE [None]
  - PANCYTOPENIA [None]
  - UPPER RESPIRATORY TRACT INFECTION [None]
